FAERS Safety Report 12286162 (Version 3)
Quarter: 2016Q3

REPORT INFORMATION
  Report Type: Report from Study
  Country: CA (occurrence: CA)
  Receive Date: 20160420
  Receipt Date: 20160805
  Transmission Date: 20161109
  Serious: Yes (Other)
  Sender: FDA-Public Use
  Company Number: CA-JNJFOC-20160207800

PATIENT
  Age: 57 Year
  Sex: Female
  Weight: 73.48 kg

DRUGS (6)
  1. STELARA [Suspect]
     Active Substance: USTEKINUMAB
     Indication: PSORIATIC ARTHROPATHY
     Route: 058
  2. STELARA [Suspect]
     Active Substance: USTEKINUMAB
     Indication: PSORIASIS
     Route: 058
  3. STELARA [Suspect]
     Active Substance: USTEKINUMAB
     Indication: PSORIASIS
     Route: 058
     Dates: start: 20150402
  4. STELARA [Suspect]
     Active Substance: USTEKINUMAB
     Indication: PSORIATIC ARTHROPATHY
     Route: 058
     Dates: start: 20150402
  5. STELARA [Suspect]
     Active Substance: USTEKINUMAB
     Indication: PSORIASIS
     Dosage: REINDUCTION 0,4,16 AND 28
     Route: 058
     Dates: start: 20160505
  6. STELARA [Suspect]
     Active Substance: USTEKINUMAB
     Indication: PSORIATIC ARTHROPATHY
     Dosage: REINDUCTION 0,4,16 AND 28
     Route: 058
     Dates: start: 20160505

REACTIONS (4)
  - Incision site infection [Recovered/Resolved]
  - Off label use [Unknown]
  - Angiopathy [Unknown]
  - Product use issue [Unknown]

NARRATIVE: CASE EVENT DATE: 20150402
